FAERS Safety Report 7629444-1 (Version None)
Quarter: 2011Q3

REPORT INFORMATION
  Report Type: 
  Country: None (occurrence: None)
  Receive Date: 20110715
  Receipt Date: 20110629
  Transmission Date: 20111222
  Serious: Yes (Death)
  Sender: FDA-Public Use
  Company Number: PRED20110036

PATIENT
  Age: 51 Year
  Sex: Female

DRUGS (3)
  1. PREDNISONE [Suspect]
     Indication: VASCULITIS
     Dosage: 10 MG, 1 IN 1 D, ORAL ; 60 MG, 1 IN 1 D, ORAL
     Route: 048
  2. CYCLOPHOSPHAMIDE [Suspect]
     Indication: VASCULITIS
     Dosage: 1 IN 1 M, PULSE
  3. METHYLPREDNISOLONE [Suspect]
     Indication: VASCULITIS
     Dosage: PULSE

REACTIONS (5)
  - HAEMODIALYSIS [None]
  - RENAL IMPAIRMENT [None]
  - DISSEMINATED INTRAVASCULAR COAGULATION [None]
  - KAPOSI'S SARCOMA [None]
  - GENERAL PHYSICAL HEALTH DETERIORATION [None]
